FAERS Safety Report 6701706-1 (Version None)
Quarter: 2010Q2

REPORT INFORMATION
  Report Type: 
  Country: None (occurrence: None)
  Receive Date: 20100429
  Receipt Date: 20100419
  Transmission Date: 20101027
  Serious: Yes (Other)
  Sender: FDA-Public Use
  Company Number: PHHY2010US25303

PATIENT
  Sex: Female

DRUGS (5)
  1. RECLAST [Suspect]
     Dosage: UNK
     Dates: start: 20080601
  2. RECLAST [Suspect]
     Dosage: UNK
     Dates: start: 20090601
  3. METHOTREXATE [Concomitant]
  4. PLAVIX [Concomitant]
  5. LIPITOR [Concomitant]

REACTIONS (7)
  - BONE GRAFT [None]
  - BONE PAIN [None]
  - DENTAL IMPLANTATION [None]
  - JAW DISORDER [None]
  - OSTEOMYELITIS [None]
  - OSTEOPOROSIS [None]
  - RHEUMATOID ARTHRITIS [None]
